FAERS Safety Report 8853855 (Version 2)
Quarter: 2013Q1

REPORT INFORMATION
  Report Type: Spontaneous
  Country: BR (occurrence: BR)
  Receive Date: 20121022
  Receipt Date: 20130220
  Transmission Date: 20140127
  Serious: Yes (Hospitalization, Other)
  Sender: FDA-Public Use
  Company Number: PHHY2012BR093928

PATIENT
  Age: 81 Year
  Sex: Male

DRUGS (5)
  1. DIOVAN HCT [Suspect]
     Indication: HYPERTENSION
     Dosage: 1 DF (320 MG VALS AND 12.5 MG HCTZ), DAILY (IN THE MORNING)
     Route: 048
     Dates: start: 2008
  2. CARVEDILOL [Concomitant]
     Indication: HYPERTENSION
     Dosage: 2 DF, DAILY
     Route: 048
     Dates: start: 201209
  3. AMLODIPINE [Concomitant]
     Indication: CEREBROVASCULAR ACCIDENT PROPHYLAXIS
     Dosage: 5 MG, DAILY
     Route: 048
     Dates: start: 201209
  4. SIMVASTATIN [Concomitant]
     Indication: BLOOD CHOLESTEROL ABNORMAL
     Dosage: 10 MG, DAILY
     Route: 048
     Dates: start: 201208
  5. XARELTO [Concomitant]
     Indication: ARRHYTHMIA
     Dosage: 20 MG, DAILY
     Route: 048
     Dates: start: 201209

REACTIONS (10)
  - Cerebrovascular accident [Not Recovered/Not Resolved]
  - Speech disorder [Unknown]
  - Somnolence [Unknown]
  - Ischaemia [Not Recovered/Not Resolved]
  - Condition aggravated [Not Recovered/Not Resolved]
  - Arrhythmia [Not Recovered/Not Resolved]
  - Blood pressure increased [Not Recovered/Not Resolved]
  - Breath odour [Not Recovered/Not Resolved]
  - Fatigue [Not Recovered/Not Resolved]
  - Drug ineffective [Unknown]
